FAERS Safety Report 7437398-6 (Version None)
Quarter: 2011Q2

REPORT INFORMATION
  Report Type: 
  Country: None (occurrence: None)
  Receive Date: 20110426
  Receipt Date: 20110414
  Transmission Date: 20111010
  Serious: Yes (Hospitalization)
  Sender: FDA-Public Use
  Company Number: PHHO2011US06744

PATIENT
  Sex: Female
  Weight: 63.3 kg

DRUGS (4)
  1. EXELON [Suspect]
     Indication: DEMENTIA ALZHEIMER'S TYPE
     Dosage: BLINDED
     Route: 062
     Dates: start: 20110311, end: 20110412
  2. BLINDED NO TREATMENT RECEIVED [Suspect]
     Indication: DEMENTIA ALZHEIMER'S TYPE
     Dosage: BLINDED
     Route: 062
     Dates: start: 20110311, end: 20110412
  3. EXELON [Suspect]
     Indication: DEMENTIA ALZHEIMER'S TYPE
     Dosage: UNK
     Route: 062
     Dates: start: 20110301, end: 20110412
  4. ZANTAC [Concomitant]

REACTIONS (1)
  - RECTAL HAEMORRHAGE [None]
